FAERS Safety Report 8056491-0 (Version None)
Quarter: 2012Q1

REPORT INFORMATION
  Report Type: 
  Country: None (occurrence: None)
  Receive Date: 20120119
  Receipt Date: 20110705
  Transmission Date: 20120608
  Serious: Yes (Hospitalization)
  Sender: FDA-Public Use
  Company Number: PT-SANOFI-AVENTIS-2011SA043116

PATIENT
  Age: 83 Year
  Sex: Male

DRUGS (15)
  1. VARFINE [Concomitant]
  2. PANTOC [Concomitant]
  3. ANDROCUR [Concomitant]
  4. CENTRUM [Concomitant]
  5. PLACEBO [Suspect]
     Route: 048
     Dates: start: 20080430, end: 20080605
  6. FLUOXETINE [Concomitant]
  7. ISOSORBIDE MONONITRATE [Concomitant]
  8. LASIX [Suspect]
     Route: 048
  9. DANCOR [Concomitant]
  10. TRAZODONE HYDROCHLORIDE [Concomitant]
  11. SEREVENT [Concomitant]
  12. ALL OTHER THERAPEUTIC PRODUCTS [Concomitant]
  13. DILBLOC [Concomitant]
  14. PLACEBO [Suspect]
     Route: 048
     Dates: start: 20061027, end: 20080323
  15. CAPOTEN [Concomitant]

REACTIONS (1)
  - HYPOKALAEMIA [None]
